FAERS Safety Report 6425911-7 (Version None)
Quarter: 2009Q4

REPORT INFORMATION
  Report Type: 
  Country: None (occurrence: None)
  Receive Date: 20091030
  Receipt Date: 20091015
  Transmission Date: 20100525
  Serious: Yes (Hospitalization, Other)
  Sender: FDA-Public Use
  Company Number: A-NJ2007-18727

PATIENT
  Age: 66 Year
  Sex: Female

DRUGS (5)
  1. TRACLEER [Suspect]
     Indication: PULMONARY ARTERIAL HYPERTENSION
     Dosage: 125 MG, BID, ORAL
     Route: 048
     Dates: start: 20080101, end: 20090605
  2. TRACLEER [Suspect]
     Indication: PULMONARY ARTERIAL HYPERTENSION
     Dosage: 125 MG, BID, ORAL
     Route: 048
     Dates: start: 20071126
  3. CRESTOR [Suspect]
  4. ASPIRIN [Concomitant]
  5. AMLODIPINE [Concomitant]

REACTIONS (8)
  - ALANINE AMINOTRANSFERASE INCREASED [None]
  - ASPARTATE AMINOTRANSFERASE INCREASED [None]
  - BLOOD ALKALINE PHOSPHATASE [None]
  - CONDITION AGGRAVATED [None]
  - DECREASED APPETITE [None]
  - ENERGY INCREASED [None]
  - PULMONARY FIBROSIS [None]
  - THERAPEUTIC RESPONSE UNEXPECTED [None]
